FAERS Safety Report 17307042 (Version 1)
Quarter: 2020Q1

REPORT INFORMATION
  Report Type: Spontaneous
  Country: US (occurrence: US)
  Receive Date: 20200122
  Receipt Date: 20200122
  Transmission Date: 20200409
  Serious: No
  Sender: FDA-Public Use
  Company Number: None

PATIENT
  Age: 2 Year
  Sex: Female
  Weight: 14.85 kg

DRUGS (1)
  1. CHILDRENS TYLENOL [Suspect]
     Active Substance: ACETAMINOPHEN
     Indication: EAR INFECTION
     Dosage: ?          QUANTITY:1 TEASPOON(S);?
     Route: 048

REACTIONS (3)
  - Drug ineffective [None]
  - Recalled product [None]
  - Hyperpyrexia [None]
